FAERS Safety Report 12754048 (Version 1)
Quarter: 2016Q3

REPORT INFORMATION
  Report Type: Spontaneous
  Country: US (occurrence: US)
  Receive Date: 20160916
  Receipt Date: 20160916
  Transmission Date: 20161109
  Serious: No
  Sender: FDA-Public Use
  Company Number: US-PFIZER INC-2016432493

PATIENT
  Age: 67 Year
  Sex: Male

DRUGS (1)
  1. ADVIL [Suspect]
     Active Substance: IBUPROFEN
     Dosage: 2 DF, UNK (TOOK 2 ADVIL CAPLETS AFTER EATING)

REACTIONS (3)
  - Dizziness [Unknown]
  - Hot flush [Unknown]
  - Hyperhidrosis [Unknown]
